FAERS Safety Report 7987976-0 (Version None)
Quarter: 2011Q4

REPORT INFORMATION
  Report Type: 
  Country: None (occurrence: None)
  Receive Date: 20111216
  Receipt Date: 20110519
  Transmission Date: 20120403
  Serious: No
  Sender: FDA-Public Use
  Company Number: US-BRISTOL-MYERS SQUIBB COMPANY-15760135

PATIENT
  Age: 49 Year
  Sex: Female

DRUGS (4)
  1. ABILIFY [Suspect]
     Dosage: INITALLY 30MG THEN INCREASED TO 60MG AND THEN TO 120 MG DOSE REDUCED TO 90MG
  2. CYMBALTA [Concomitant]
  3. SYNTHROID [Concomitant]
  4. LISINOPRIL [Concomitant]

REACTIONS (1)
  - MUSCLE SPASMS [None]
